FAERS Safety Report 12838852 (Version 3)
Quarter: 2018Q4

REPORT INFORMATION
  Report Type: Spontaneous
  Country: US (occurrence: US)
  Receive Date: 20161012
  Receipt Date: 20181120
  Transmission Date: 20190204
  Serious: Yes (Life-Threatening, Hospitalization, Other)
  Sender: FDA-Public Use
  Company Number: US-PFIZER INC-2016466826

PATIENT
  Age: 60 Year
  Sex: Male
  Weight: 69 kg

DRUGS (5)
  1. TIKOSYN [Suspect]
     Active Substance: DOFETILIDE
     Indication: HEART RATE
     Dosage: 125 UG, TWICE A DAY
     Route: 048
  2. CARVEDILOL. [Concomitant]
     Active Substance: CARVEDILOL
     Indication: HEART RATE ABNORMAL
     Dosage: 9.375 MG, 2X/DAY
     Route: 048
  3. INSPRA [Concomitant]
     Active Substance: EPLERENONE
     Dosage: UNK
  4. TIKOSYN [Suspect]
     Active Substance: DOFETILIDE
     Indication: ATRIAL FIBRILLATION
     Dosage: 125 UG, TWICE A DAY
     Route: 048
     Dates: start: 2009
  5. CARVEDILOL. [Concomitant]
     Active Substance: CARVEDILOL
     Indication: CARDIAC FAILURE
     Dosage: 37.5 MG, 2X/DAY

REACTIONS (9)
  - Ventricular tachycardia [Recovered/Resolved]
  - Pulmonary oedema [Recovered/Resolved with Sequelae]
  - Ventricular fibrillation [Recovered/Resolved]
  - Seizure [Unknown]
  - Heart rate increased [Unknown]
  - Atrial fibrillation [Recovered/Resolved]
  - Drug effect incomplete [Unknown]
  - Cardiogenic shock [Unknown]
  - Loss of consciousness [Unknown]

NARRATIVE: CASE EVENT DATE: 201807
